FAERS Safety Report 12052036 (Version 1)
Quarter: 2016Q1

REPORT INFORMATION
  Report Type: Spontaneous
  Country: US (occurrence: US)
  Receive Date: 20160209
  Receipt Date: 20160209
  Transmission Date: 20160526
  Serious: No
  Sender: FDA-Public Use
  Company Number: US-TEVA-631326USA

PATIENT
  Age: 82 Year
  Sex: Female
  Weight: 65.38 kg

DRUGS (5)
  1. SYNTHROID [Concomitant]
     Active Substance: LEVOTHYROXINE SODIUM
     Indication: THYROID DISORDER
  2. METOPROLOL. [Concomitant]
     Active Substance: METOPROLOL
     Indication: BLOOD PRESSURE ABNORMAL
  3. ATORVASTATIN [Concomitant]
     Active Substance: ATORVASTATIN
     Indication: BLOOD CHOLESTEROL ABNORMAL
  4. ALENDRONATE SODIUM. [Concomitant]
     Active Substance: ALENDRONATE SODIUM
     Indication: BONE DISORDER
  5. ENJUVIA [Suspect]
     Active Substance: ESTROGENS, CONJUGATED SYNTHETIC B
     Indication: HOT FLUSH
     Route: 048

REACTIONS (2)
  - Drug ineffective [Unknown]
  - Hot flush [Unknown]

NARRATIVE: CASE EVENT DATE: 20151219
